FAERS Safety Report 9393003 (Version 1)
Quarter: 2013Q3

REPORT INFORMATION
  Report Type: Spontaneous
  Country: US (occurrence: None)
  Receive Date: 20130708
  Receipt Date: 20130708
  Transmission Date: 20140515
  Serious: Yes (Other)
  Sender: FDA-Public Use
  Company Number: None

PATIENT
  Age: 67 Year
  Sex: Female

DRUGS (1)
  1. COPAXONE [Suspect]
     Indication: MULTIPLE SCLEROSIS
     Dosage: STARTED MED BEFORE 2007?20MG QD S-C
     Route: 058
     Dates: start: 2007, end: 20130705

REACTIONS (3)
  - Throat tightness [None]
  - Pruritus [None]
  - Pain [None]
